FAERS Safety Report 9333259 (Version 2)
Quarter: 2013Q2

REPORT INFORMATION
  Report Type: Spontaneous
  Country: IT (occurrence: None)
  Receive Date: 20130604
  Receipt Date: 20130613
  Transmission Date: 20140414
  Serious: Yes (Hospitalization)
  Sender: FDA-Public Use
  Company Number: AUR-APL-2013-04415

PATIENT
  Age: 87 Year
  Sex: Female

DRUGS (10)
  1. BISOPROLOL [Suspect]
     Indication: PRODUCT USED FOR UNKNOWN INDICATION
     Dosage: (2.5 MG,1 D)
     Route: 048
     Dates: start: 20130101, end: 20130518
  2. ALDACTONE [Suspect]
     Dosage: (1 DOSAGE FORM,1 D)
     Route: 048
     Dates: start: 20130101, end: 20130518
  3. LASIX (FUROSEMIDE) [Concomitant]
  4. CARDIOASPIRIN (ACETYLSALICYLIC ACID) [Concomitant]
  5. URIVESC (TROSPIUM CHLORIDE) [Concomitant]
  6. VASEXTEN (BARNIDIPINE HYDROCHLORIDE) [Concomitant]
  7. ANTRA [Concomitant]
  8. CRESTOR ROSUVASTATIN CALCIUM) [Concomitant]
  9. CATAPRESAN (CLONIDIPINE) [Concomitant]
  10. RAMIPRIL (RAMIPRIL) [Concomitant]

REACTIONS (7)
  - Nodal rhythm [None]
  - Asthenia [None]
  - Hyperkalaemia [None]
  - Nodal arrhythmia [None]
  - Vertigo [None]
  - Bradycardia [None]
  - Dizziness [None]
